FAERS Safety Report 5981441-8 (Version None)
Quarter: 2008Q4

REPORT INFORMATION
  Report Type: 
  Country: None (occurrence: None)
  Receive Date: 20081205
  Receipt Date: 20081125
  Transmission Date: 20090506
  Serious: Yes (Other)
  Sender: FDA-Public Use
  Company Number: US-ELI_LILLY_AND_COMPANY-US200811005794

PATIENT
  Sex: Male

DRUGS (3)
  1. CIALIS [Suspect]
     Indication: ERECTILE DYSFUNCTION
     Dosage: 20 MG, AS NEEDED
     Route: 065
  2. CIALIS [Suspect]
     Dosage: 2.5 MG, DAILY (1/D)
     Route: 065
  3. ZESTRIL [Concomitant]
     Indication: HYPERTENSION
     Dosage: 20 MG, DAILY (1/D)
     Route: 065

REACTIONS (4)
  - DIZZINESS [None]
  - INFLUENZA [None]
  - LOSS OF CONSCIOUSNESS [None]
  - MALAISE [None]
